FAERS Safety Report 14551356 (Version 1)
Quarter: 2018Q1

REPORT INFORMATION
  Report Type: Spontaneous
  Country: US (occurrence: US)
  Receive Date: 20180220
  Receipt Date: 20180220
  Transmission Date: 20180509
  Serious: Yes (Life-Threatening, Other)
  Sender: FDA-Public Use
  Company Number: US-ACCORD-063437

PATIENT
  Age: 17 Year
  Sex: Male

DRUGS (5)
  1. RITUXIMAB. [Suspect]
     Active Substance: RITUXIMAB
     Indication: AUTOIMMUNE HAEMOLYTIC ANAEMIA
  2. BORTEZOMIB [Suspect]
     Active Substance: BORTEZOMIB
     Indication: AUTOIMMUNE HAEMOLYTIC ANAEMIA
  3. CYCLOPHOSPHAMIDE/CYCLOPHOSPHAMIDE MONOHYDRATE [Suspect]
     Active Substance: CYCLOPHOSPHAMIDE
     Indication: AUTOIMMUNE HAEMOLYTIC ANAEMIA
  4. MYCOPHENOLIC ACID. [Suspect]
     Active Substance: MYCOPHENOLIC ACID
     Indication: AUTOIMMUNE HAEMOLYTIC ANAEMIA
  5. IMMUNOGLOBULIN IV [Suspect]
     Active Substance: HUMAN IMMUNOGLOBULIN G
     Indication: AUTOIMMUNE HAEMOLYTIC ANAEMIA
     Route: 042

REACTIONS (2)
  - Drug ineffective [Unknown]
  - Off label use [Unknown]
